FAERS Safety Report 5742228-4 (Version None)
Quarter: 2008Q2

REPORT INFORMATION
  Report Type: 
  Country: None (occurrence: None)
  Receive Date: 20080514
  Receipt Date: 20080514
  Transmission Date: 20081010
  Serious: Yes (Other)
  Sender: FDA-Public Use
  Company Number: None

PATIENT
  Age: 88 Year
  Sex: Male

DRUGS (1)
  1. DIGITEK 0.125MG AMIDE-BERTEK- [Suspect]
     Dosage: 0.125MG  EVERY OTHER DAY PO
     Route: 048
     Dates: start: 20080326, end: 20080509

REACTIONS (4)
  - FATIGUE [None]
  - FEELING COLD [None]
  - HALLUCINATION, VISUAL [None]
  - VIRAL INFECTION [None]
